FAERS Safety Report 4618065-0 (Version None)
Quarter: 2005Q2

REPORT INFORMATION
  Report Type: 
  Country: None (occurrence: None)
  Receive Date: 20050316
  Receipt Date: 20050126
  Transmission Date: 20051028
  Serious: Yes (Hospitalization)
  Sender: FDA-Public Use
  Company Number: S05-USA-00524-01

PATIENT

DRUGS (2)
  1. LEXAPRO [Suspect]
  2. LEXAPRO [Suspect]
     Dosage: 750 MG ONCE PO
     Route: 048

REACTIONS (2)
  - OVERDOSE [None]
  - TACHYCARDIA [None]
